FAERS Safety Report 5400567-0 (Version None)
Quarter: 2007Q3

REPORT INFORMATION
  Report Type: 
  Country: None (occurrence: None)
  Receive Date: 20070730
  Receipt Date: 20070605
  Transmission Date: 20080115
  Serious: Yes (Other)
  Sender: FDA-Public Use
  Company Number: US-PURDUE-USA_2002_0002973

PATIENT
  Age: 41 Year
  Sex: Male
  Weight: 95 kg

DRUGS (20)
  1. VIOXX [Concomitant]
     Indication: DRUG USE FOR UNKNOWN INDICATION
     Dosage: 25 MG, BID
  2. PAXIL [Concomitant]
     Indication: DRUG USE FOR UNKNOWN INDICATION
     Dosage: 30 MG, HS
  3. SKELAXIN [Concomitant]
     Indication: DRUG USE FOR UNKNOWN INDICATION
     Dosage: 400 MG, Q8H
  4. NAPROSYN [Concomitant]
     Indication: DRUG USE FOR UNKNOWN INDICATION
     Dosage: 500 MG, UNK
  5. MONOPRIL [Concomitant]
     Indication: DRUG USE FOR UNKNOWN INDICATION
  6. OXYCONTIN [Suspect]
     Indication: PAIN
     Dosage: 20 MG, SEE TEXT
     Route: 048
     Dates: start: 20000907
  7. OXYCONTIN [Suspect]
     Dosage: 10 MG, Q12H
     Route: 048
     Dates: start: 20000701, end: 20030101
  8. OXYCONTIN [Suspect]
     Dosage: 40 MG, Q12H
     Route: 048
     Dates: start: 20010113
  9. MEPERGAN FORTIS [Concomitant]
     Indication: PAIN MANAGEMENT
     Dosage: UNK, DAILY
     Route: 048
  10. SOMA [Concomitant]
     Indication: MUSCLE SPASMS
     Dosage: 350 MG, TID
     Route: 048
  11. DOXEPIN HCL [Concomitant]
     Indication: INSOMNIA
     Dosage: 50 MG, NOCTE
     Route: 048
  12. MOBIC [Concomitant]
     Indication: DRUG USE FOR UNKNOWN INDICATION
     Dosage: UNK, UNK
     Route: 048
  13. NEURONTIN [Concomitant]
     Indication: RADICULOPATHY
     Dosage: 300 MG, TID
     Route: 048
  14. RESTORIL [Concomitant]
     Indication: INSOMNIA
     Dosage: 30 MG, NOCTE PRN
     Route: 048
  15. CELEBREX [Concomitant]
     Indication: ARTHRITIS
     Dosage: 200 MG, DAILY
     Route: 048
  16. OXYIR CAPSULES 5 MG [Suspect]
     Indication: PAIN MANAGEMENT
     Dosage: 5 MG, DAILY
     Route: 048
  17. PANLOR SS [Concomitant]
     Indication: DRUG USE FOR UNKNOWN INDICATION
     Dosage: UNK, TID
  18. TEMAZEPAM [Concomitant]
     Indication: DRUG USE FOR UNKNOWN INDICATION
     Dosage: 30 MG, UNK
  19. DURAGESIC-100 [Concomitant]
     Indication: DRUG USE FOR UNKNOWN INDICATION
     Dosage: 75 MCG, UNK
  20. DARVOCET [Concomitant]
     Indication: PAIN

REACTIONS (28)
  - ABDOMINAL DISCOMFORT [None]
  - ANGER [None]
  - ANXIETY [None]
  - BACK PAIN [None]
  - DEPRESSION [None]
  - DISCOMFORT [None]
  - DRUG DEPENDENCE [None]
  - DRUG TOLERANCE INCREASED [None]
  - DRUG WITHDRAWAL SYNDROME [None]
  - DYSAESTHESIA [None]
  - EMOTIONAL DISTRESS [None]
  - GAIT DISTURBANCE [None]
  - HYPERTENSION [None]
  - HYPOAESTHESIA [None]
  - INSOMNIA [None]
  - MUSCLE SPASMS [None]
  - NERVOUSNESS [None]
  - OVERWEIGHT [None]
  - PAIN [None]
  - PAIN IN EXTREMITY [None]
  - PARAESTHESIA [None]
  - PRURITUS [None]
  - RADICULOPATHY [None]
  - SCIATICA [None]
  - SOMNOLENCE [None]
  - SUICIDAL IDEATION [None]
  - TENDERNESS [None]
  - WEIGHT DECREASED [None]
